FAERS Safety Report 23188558 (Version 3)
Quarter: 2024Q1

REPORT INFORMATION
  Report Type: Spontaneous
  Country: US (occurrence: US)
  Receive Date: 20231115
  Receipt Date: 20240125
  Transmission Date: 20240409
  Serious: No
  Sender: FDA-Public Use
  Company Number: US-PFIZER INC-202300367688

PATIENT
  Age: 13 Year
  Sex: Male
  Weight: 35.83 kg

DRUGS (1)
  1. OXBRYTA [Suspect]
     Active Substance: VOXELOTOR
     Indication: Sickle cell disease
     Dosage: 3 TABLETS, ONCE DAILY, ORALLY
     Route: 048
     Dates: start: 20231108

REACTIONS (2)
  - Off label use [Unknown]
  - Diarrhoea [Unknown]
